FAERS Safety Report 13233688 (Version 1)
Quarter: 2017Q1

REPORT INFORMATION
  Report Type: Spontaneous
  Country: US (occurrence: US)
  Receive Date: 20170214
  Receipt Date: 20170214
  Transmission Date: 20170428
  Serious: Yes (Other)
  Sender: FDA-Public Use
  Company Number: None

PATIENT
  Age: 33 Year
  Sex: Male
  Weight: 80.74 kg

DRUGS (5)
  1. ADDERALL [Concomitant]
     Active Substance: AMPHETAMINE ASPARTATE\AMPHETAMINE SULFATE\DEXTROAMPHETAMINE SACCHARATE\DEXTROAMPHETAMINE SULFATE
  2. BUPROPION XL 150 MG TAB 30 [Suspect]
     Active Substance: BUPROPION HYDROCHLORIDE
     Indication: DEPRESSION
     Dosage: 1 OF EACH PILL ONCE UPON WAKENING BY MOUTH
     Route: 048
     Dates: start: 20170127, end: 20170207
  3. BUPROPION XL 150 MG TAB 30 [Suspect]
     Active Substance: BUPROPION HYDROCHLORIDE
     Indication: ATTENTION DEFICIT/HYPERACTIVITY DISORDER
     Dosage: 1 OF EACH PILL ONCE UPON WAKENING BY MOUTH
     Route: 048
     Dates: start: 20170127, end: 20170207
  4. WELLBUTRIN [Concomitant]
     Active Substance: BUPROPION HYDROCHLORIDE
  5. BUPROPION HCL ER (XL) 300MG TB24 [Suspect]
     Active Substance: BUPROPION HYDROCHLORIDE
     Indication: DEPRESSION
     Dosage: 1 OF EACH PILL ONCE UPON WAKENING BY MOUTH
     Route: 048
     Dates: start: 20170127, end: 20170207

REACTIONS (7)
  - Depression [None]
  - Swelling face [None]
  - Flushing [None]
  - Attention deficit/hyperactivity disorder [None]
  - Anxiety [None]
  - Insomnia [None]
  - Hypersensitivity [None]

NARRATIVE: CASE EVENT DATE: 20170207
